FAERS Safety Report 4500348-6 (Version None)
Quarter: 2004Q4

REPORT INFORMATION
  Report Type: 
  Country: None (occurrence: None)
  Receive Date: 20041112
  Receipt Date: 20041103
  Transmission Date: 20050328
  Serious: Yes (Disabling)
  Sender: FDA-Public Use
  Company Number: DK-MERCK-0411DNK00009

PATIENT
  Age: 68 Year
  Sex: Female
  Weight: 69 kg

DRUGS (5)
  1. VIOXX [Suspect]
     Indication: ARTHRALGIA
     Route: 048
     Dates: start: 20000201, end: 20041001
  2. CITALOPRAM HYDROBROMIDE [Concomitant]
     Route: 048
     Dates: start: 19940101, end: 20031001
  3. ESCITALOPRAM OXALATE [Concomitant]
     Route: 048
     Dates: start: 20031001
  4. DIAZEPAM [Concomitant]
     Route: 048
     Dates: start: 19850101
  5. PROPOXYPHENE HYDROCHLORIDE [Concomitant]
     Route: 065
     Dates: start: 20020101

REACTIONS (1)
  - CEREBRAL THROMBOSIS [None]
